FAERS Safety Report 17212226 (Version 2)
Quarter: 2020Q1

REPORT INFORMATION
  Report Type: Spontaneous
  Country: JP (occurrence: JP)
  Receive Date: 20191230
  Receipt Date: 20200109
  Transmission Date: 20200409
  Serious: No
  Sender: FDA-Public Use
  Company Number: JP-BEH-2019110971

PATIENT
  Age: 10 Year
  Sex: Male

DRUGS (6)
  1. IDELVION [Suspect]
     Active Substance: COAGULATION FACTOR IX RECOMBINANT HUMAN
     Indication: PROPHYLAXIS
     Dosage: 1000 INTERNATIONAL UNIT, QD
     Route: 042
     Dates: start: 20191206, end: 20191206
  2. IDELVION [Suspect]
     Active Substance: COAGULATION FACTOR IX RECOMBINANT HUMAN
     Indication: PROPHYLAXIS
     Dosage: 1000 INTERNATIONAL UNIT, QD
     Route: 042
     Dates: start: 20191206, end: 20191206
  3. IDELVION [Suspect]
     Active Substance: COAGULATION FACTOR IX RECOMBINANT HUMAN
     Dosage: 1000 INTERNATIONAL UNITS, QD
     Route: 042
     Dates: start: 20191207, end: 20191207
  4. IDELVION [Suspect]
     Active Substance: COAGULATION FACTOR IX RECOMBINANT HUMAN
     Indication: FACTOR IX DEFICIENCY
     Dosage: 1000 INTERNATIONAL UNIT, QW
     Route: 042
     Dates: start: 20190601
  5. IDELVION [Suspect]
     Active Substance: COAGULATION FACTOR IX RECOMBINANT HUMAN
     Dosage: 1000 INTERNATIONAL UNITS, QD
     Route: 042
     Dates: start: 20191207, end: 20191207
  6. IDELVION [Suspect]
     Active Substance: COAGULATION FACTOR IX RECOMBINANT HUMAN
     Indication: FACTOR IX DEFICIENCY
     Dosage: 1000 INTERNATIONAL UNIT, QW
     Route: 042
     Dates: start: 20190601

REACTIONS (2)
  - Fall [Unknown]
  - Arthralgia [Recovered/Resolved]

NARRATIVE: CASE EVENT DATE: 20191206
